FAERS Safety Report 15123917 (Version 1)
Quarter: 2018Q3

REPORT INFORMATION
  Report Type: Spontaneous
  Country: NL (occurrence: NL)
  Receive Date: 20180710
  Receipt Date: 20180710
  Transmission Date: 20181010
  Serious: Yes (Other)
  Sender: FDA-Public Use
  Company Number: NL-ACCORD-069335

PATIENT
  Age: 63 Year
  Sex: Male

DRUGS (4)
  1. PERTUZUMAB. [Suspect]
     Active Substance: PERTUZUMAB
     Indication: METASTATIC SALIVARY GLAND CANCER
     Dosage: EVERY 3 WEEKS
  2. DOCETAXEL. [Suspect]
     Active Substance: DOCETAXEL
     Indication: METASTATIC SALIVARY GLAND CANCER
     Dosage: EVERY 3 WEEKS
     Route: 042
  3. PERTUZUMAB. [Suspect]
     Active Substance: PERTUZUMAB
     Indication: METASTATIC SALIVARY GLAND CANCER
     Dosage: LOADING DOSE, EVERY 3 WEEKS
     Route: 058
  4. TRASTUZUMAB. [Suspect]
     Active Substance: TRASTUZUMAB
     Indication: METASTATIC SALIVARY GLAND CANCER
     Dosage: EVERY 3 WEEKS
     Route: 058

REACTIONS (4)
  - Subcutaneous abscess [Unknown]
  - Pharyngeal abscess [Unknown]
  - Radiation injury [Unknown]
  - Erysipelas [Unknown]
